FAERS Safety Report 19909375 (Version 1)
Quarter: 2021Q4

REPORT INFORMATION
  Report Type: Spontaneous
  Country: US (occurrence: US)
  Receive Date: 20211001
  Receipt Date: 20211001
  Transmission Date: 20220303
  Serious: No
  Sender: FDA-Public Use
  Company Number: US-AMARIN PHARMA, INC.-2021AMR000274

PATIENT
  Sex: Male

DRUGS (2)
  1. VASCEPA [Suspect]
     Active Substance: ICOSAPENT ETHYL
     Indication: Product used for unknown indication
     Dates: end: 20210215
  2. VASCEPA [Suspect]
     Active Substance: ICOSAPENT ETHYL
     Dates: start: 20210414

REACTIONS (8)
  - Eructation [Recovered/Resolved]
  - Breath odour [Recovered/Resolved]
  - Intentional underdose [Recovered/Resolved]
  - Therapy interrupted [Recovered/Resolved]
  - Product physical issue [Recovered/Resolved]
  - Product odour abnormal [Recovered/Resolved]
  - Product coating issue [Recovered/Resolved]
  - Product size issue [Recovered/Resolved]
